FAERS Safety Report 22846142 (Version 5)
Quarter: 2024Q2

REPORT INFORMATION
  Report Type: Spontaneous
  Country: US (occurrence: US)
  Receive Date: 20230821
  Receipt Date: 20240506
  Transmission Date: 20240716
  Serious: Yes (Other)
  Sender: FDA-Public Use
  Company Number: US-BRISTOL-MYERS SQUIBB COMPANY-2023-116649

PATIENT
  Age: 72 Year
  Sex: Female

DRUGS (3)
  1. REVLIMID [Suspect]
     Active Substance: LENALIDOMIDE
     Indication: Plasma cell myeloma
     Dosage: FREQUENCY- TAKE 1 CAPSULE BY MOUTH EVERY DAY ON DAYS 1-21 THEN 7 DAYS OFF
     Route: 048
     Dates: start: 20230222
  2. REVLIMID [Suspect]
     Active Substance: LENALIDOMIDE
     Indication: Plasma cell myeloma in remission
     Dosage: TAKE 1 CAPSULE BY MOUTH DAILY FOR 21 DAYS FOLLOWED BY 7 DAYS OFF THEN REPEAT
     Route: 048
  3. REVLIMID [Suspect]
     Active Substance: LENALIDOMIDE
     Dosage: TAKE 1 CAPSULE BY MOUTH DAILY FOR 21 DAYS FOLLOWED BY 7 DAYS OFF THEN REPEAT
     Route: 048

REACTIONS (22)
  - Pain in extremity [Recovering/Resolving]
  - Memory impairment [Unknown]
  - Slow speech [Unknown]
  - Pain [Unknown]
  - Dizziness [Unknown]
  - Confusional state [Not Recovered/Not Resolved]
  - Constipation [Not Recovered/Not Resolved]
  - Decreased appetite [Not Recovered/Not Resolved]
  - Fatigue [Not Recovered/Not Resolved]
  - Depression [Unknown]
  - Cough [Not Recovered/Not Resolved]
  - Affect lability [Not Recovered/Not Resolved]
  - Insomnia [Not Recovered/Not Resolved]
  - Feeling jittery [Not Recovered/Not Resolved]
  - Performance status decreased [Not Recovered/Not Resolved]
  - Stress [Not Recovered/Not Resolved]
  - Gait disturbance [Not Recovered/Not Resolved]
  - Aphasia [Not Recovered/Not Resolved]
  - Daydreaming [Not Recovered/Not Resolved]
  - Disorientation [Not Recovered/Not Resolved]
  - Product dose omission in error [Unknown]
  - Therapy interrupted [Unknown]
